FAERS Safety Report 8026172-8 (Version None)
Quarter: 2012Q1

REPORT INFORMATION
  Report Type: 
  Country: None (occurrence: None)
  Receive Date: 20120105
  Receipt Date: 20110207
  Transmission Date: 20120608
  Serious: No
  Sender: FDA-Public Use
  Company Number: US-ABBOTT-11P-163-0704358-00

PATIENT
  Sex: Female
  Weight: 54.48 kg

DRUGS (3)
  1. SYNTHROID [Suspect]
     Dates: start: 19970101, end: 20020101
  2. SYNTHROID [Suspect]
     Dates: end: 20110107
  3. SYNTHROID [Suspect]
     Indication: HYPOTHYROIDISM
     Dosage: DAILY,CUTS 50 TO COMBINE INTO 62.5MCG
     Dates: start: 20110108

REACTIONS (3)
  - INSOMNIA [None]
  - WRONG TECHNIQUE IN DRUG USAGE PROCESS [None]
  - ALOPECIA [None]
